FAERS Safety Report 5089333-6 (Version None)
Quarter: 2006Q3

REPORT INFORMATION
  Report Type: 
  Country: None (occurrence: None)
  Receive Date: 20060822
  Receipt Date: 20060808
  Transmission Date: 20061208
  Serious: Yes (Hospitalization)
  Sender: FDA-Public Use
  Company Number: FR-2006-022187

PATIENT
  Age: 66 Year
  Sex: Female

DRUGS (7)
  1. FLUDARABINE PHOSPHATE [Suspect]
     Dosage: 40 MG/M2, INTRAVENOUS
     Route: 042
     Dates: start: 20060215, end: 20060219
  2. NEURONTIN [Concomitant]
  3. MONICOR L.P. [Concomitant]
  4. COKENZEN (CANDESARTAN CILEXETIL) [Concomitant]
  5. LEVOTHYROXINE SODIUM [Concomitant]
  6. PLAVIX [Concomitant]
  7. LANTUS [Concomitant]

REACTIONS (9)
  - ALANINE AMINOTRANSFERASE INCREASED [None]
  - ASPARTATE AMINOTRANSFERASE INCREASED [None]
  - BLOOD ALKALINE PHOSPHATASE INCREASED [None]
  - BLOOD BILIRUBIN INCREASED [None]
  - CHOLESTASIS [None]
  - CYTOLYTIC HEPATITIS [None]
  - GAMMA-GLUTAMYLTRANSFERASE INCREASED [None]
  - JAUNDICE [None]
  - LIVER DISORDER [None]
